FAERS Safety Report 14963263 (Version 1)
Quarter: 2018Q2

REPORT INFORMATION
  Report Type: Spontaneous
  Country: DE (occurrence: DE)
  Receive Date: 20180601
  Receipt Date: 20180601
  Transmission Date: 20180711
  Serious: Yes (Hospitalization)
  Sender: FDA-Public Use
  Company Number: DE-GLAXOSMITHKLINE-DE2018GSK097782

PATIENT
  Age: 69 Year
  Sex: Male

DRUGS (2)
  1. CEFUROXIM-RATIOPHARM [Suspect]
     Active Substance: CEFUROXIME
     Indication: ERYSIPELAS
     Dosage: 250 MG, UNK
     Dates: start: 201805, end: 20180522
  2. CEFUROXIM-RATIOPHARM [Suspect]
     Active Substance: CEFUROXIME
     Indication: STREPTOCOCCAL INFECTION
     Dosage: UNK
     Route: 042
     Dates: start: 20180515, end: 201805

REACTIONS (8)
  - Headache [Recovering/Resolving]
  - Chills [Recovering/Resolving]
  - Hyperhidrosis [Recovering/Resolving]
  - Pyrexia [Recovering/Resolving]
  - Occipital neuralgia [Not Recovered/Not Resolved]
  - Balanoposthitis [Recovering/Resolving]
  - Cough [Recovering/Resolving]
  - Jarisch-Herxheimer reaction [Recovering/Resolving]

NARRATIVE: CASE EVENT DATE: 201805
